FAERS Safety Report 11623183 (Version 1)
Quarter: 2015Q4

REPORT INFORMATION
  Report Type: Spontaneous
  Country: US (occurrence: US)
  Receive Date: 20151013
  Receipt Date: 20151013
  Transmission Date: 20160304
  Serious: No
  Sender: FDA-Public Use
  Company Number: US-JNJFOC-20150309457

PATIENT
  Age: 6 Month
  Sex: Female
  Weight: 6.35 kg

DRUGS (1)
  1. INFANTS TYLENOL [Suspect]
     Active Substance: ACETAMINOPHEN
     Indication: TEETHING
     Dosage: ONCE
     Route: 048
     Dates: start: 20150305

REACTIONS (3)
  - Product use issue [Unknown]
  - Product quality issue [Unknown]
  - Drug administration error [None]
